FAERS Safety Report 5484611-0 (Version None)
Quarter: 2007Q4

REPORT INFORMATION
  Report Type: 
  Country: None (occurrence: None)
  Receive Date: 20071012
  Receipt Date: 20071001
  Transmission Date: 20080405
  Serious: Yes (Death, Other)
  Sender: FDA-Public Use
  Company Number: US-PFIZER INC-2007050784

PATIENT
  Sex: Female

DRUGS (2)
  1. CELEBREX [Suspect]
     Indication: PAIN MANAGEMENT
     Route: 048
     Dates: start: 19990101, end: 20020510
  2. CELEBREX [Suspect]
     Indication: TENDONITIS

REACTIONS (2)
  - AORTIC VALVE INCOMPETENCE [None]
  - CARDIOVASCULAR DISORDER [None]
